FAERS Safety Report 9252639 (Version 1)
Quarter: 2013Q2

REPORT INFORMATION
  Report Type: Report from Study
  Country: US (occurrence: US)
  Receive Date: 20130424
  Receipt Date: 20130424
  Transmission Date: 20140414
  Serious: Yes (Hospitalization, Other)
  Sender: FDA-Public Use
  Company Number: US-ABBOTT-13P-163-1077344-00

PATIENT
  Age: 62 Year
  Sex: Male

DRUGS (6)
  1. HUMIRA [Suspect]
     Indication: RHEUMATOID ARTHRITIS
     Dates: start: 201201
  2. HUMIRA [Suspect]
     Indication: RHEUMATOID ARTHRITIS
     Dates: start: 201201, end: 201206
  3. HYDROXYCHLOROQUINE [Concomitant]
     Indication: RHEUMATOID ARTHRITIS
     Dates: start: 20130403
  4. LISINOPRIL [Concomitant]
     Indication: HYPERTENSION
  5. COREG [Concomitant]
     Indication: HYPERTENSION
  6. AMIODARONE [Concomitant]
     Indication: HYPERTENSION

REACTIONS (2)
  - Ejection fraction decreased [Unknown]
  - Cardiac failure congestive [Unknown]
